FAERS Safety Report 4440975-8 (Version None)
Quarter: 2004Q3

REPORT INFORMATION
  Report Type: 
  Country: None (occurrence: None)
  Receive Date: 20040728
  Receipt Date: 20040601
  Transmission Date: 20050211
  Serious: No
  Sender: FDA-Public Use
  Company Number: USA040465168

PATIENT
  Age: 36 Year
  Sex: Female
  Weight: 61 kg

DRUGS (4)
  1. STRATTERA [Suspect]
     Indication: EATING DISORDER
     Dosage: 100 MG/1 DAY
     Dates: start: 20040501
  2. STRATTERA [Suspect]
     Indication: FIBROMYALGIA
     Dosage: 100 MG/1 DAY
     Dates: start: 20040501
  3. PROZAC [Suspect]
     Dates: end: 19940401
  4. ACYCLOVIR [Concomitant]

REACTIONS (11)
  - AFFECTIVE DISORDER [None]
  - CONFUSIONAL STATE [None]
  - DRUG INEFFECTIVE [None]
  - DYSGEUSIA [None]
  - DYSPNOEA [None]
  - FATIGUE [None]
  - FEELING ABNORMAL [None]
  - NERVOUSNESS [None]
  - PRESCRIBED OVERDOSE [None]
  - RASH [None]
  - URTICARIA [None]
